FAERS Safety Report 25112381 (Version 1)
Quarter: 2025Q1

REPORT INFORMATION
  Report Type: Spontaneous
  Country: US (occurrence: US)
  Receive Date: 20250324
  Receipt Date: 20250324
  Transmission Date: 20250408
  Serious: No
  Sender: UCB
  Company Number: US-UCBSA-2024050337

PATIENT
  Age: 44 Year
  Sex: Male

DRUGS (5)
  1. BRIVIACT [Interacting]
     Active Substance: BRIVARACETAM
     Indication: Seizure
     Dosage: 100 MILLIGRAM, 2X/DAY (BID)
     Route: 048
     Dates: start: 20240920
  2. BRIVIACT [Interacting]
     Active Substance: BRIVARACETAM
     Indication: Epilepsy
  3. LEXAPRO [Interacting]
     Active Substance: ESCITALOPRAM OXALATE
     Indication: Product used for unknown indication
     Dosage: 10 MILLIGRAM, 2X/DAY (BID)
     Dates: start: 202409
  4. LEXAPRO [Interacting]
     Active Substance: ESCITALOPRAM OXALATE
  5. TOPAMAX [Concomitant]
     Active Substance: TOPIRAMATE
     Indication: Seizure
     Dosage: UNK UNK, 2X/DAY (BID) (100 MG ONE TAB IN THE MORNING AND 2 TAB IN THE NIGHT)
     Dates: start: 2018

REACTIONS (4)
  - Diarrhoea [Unknown]
  - Nausea [Unknown]
  - Vomiting [Unknown]
  - Drug interaction [Unknown]

NARRATIVE: CASE EVENT DATE: 20240901
